FAERS Safety Report 6792995-6 (Version None)
Quarter: 2010Q2

REPORT INFORMATION
  Report Type: 
  Country: None (occurrence: None)
  Receive Date: 20100624
  Receipt Date: 20081125
  Transmission Date: 20101027
  Serious: No
  Sender: FDA-Public Use
  Company Number: US-PFIZER INC-2008100064

PATIENT
  Age: 57 Year
  Sex: Male
  Weight: 77.3 kg

DRUGS (7)
  1. SUTENT [Suspect]
     Indication: RENAL CELL CARCINOMA
     Dates: start: 20071201
  2. LASIX [Suspect]
  3. ALL OTHER THERAPEUTIC PRODUCTS [Suspect]
  4. ZOMETA [Concomitant]
  5. ALDACTONE [Concomitant]
  6. ZOLOFT [Concomitant]
  7. PREVACID [Concomitant]

REACTIONS (4)
  - ABASIA [None]
  - FEELING COLD [None]
  - PAIN IN EXTREMITY [None]
  - SKIN DISORDER [None]
